FAERS Safety Report 22217550 (Version 1)
Quarter: 2023Q2

REPORT INFORMATION
  Report Type: Spontaneous
  Country: JP (occurrence: JP)
  Receive Date: 20230417
  Receipt Date: 20230417
  Transmission Date: 20230721
  Serious: Yes (Death, Hospitalization)
  Sender: FDA-Public Use
  Company Number: JP-STRIDES ARCOLAB LIMITED-2023SP005449

PATIENT
  Age: 72 Year
  Sex: Female

DRUGS (9)
  1. METHOTREXATE [Suspect]
     Active Substance: METHOTREXATE
     Indication: Ocular lymphoma
     Dosage: UNK (PLANNED FOR 5 WEEKS) (INJECTION)
  2. METHOTREXATE [Suspect]
     Active Substance: METHOTREXATE
     Dosage: UNK, CYCLICAL (EVERY 4 WEEKS) (PLANNED FOR 5 CYCLES; SYSTEMIC; AS A PART OF R-MPV THERAPY)
     Route: 065
  3. RITUXIMAB [Suspect]
     Active Substance: RITUXIMAB
     Indication: Ocular lymphoma
     Dosage: UNK, EVERY 4 WEEKS  (5 CYCLE)(SYSTEMIC; AS A PART OF R-MPV THERAPY)
     Route: 065
  4. RITUXIMAB [Suspect]
     Active Substance: RITUXIMAB
     Indication: Ocular lymphoma
     Dosage: UNK
     Route: 065
  5. CYTARABINE [Suspect]
     Active Substance: CYTARABINE
     Indication: Ocular lymphoma
     Dosage: UNK (HIGH-DOSE CYTARABINE AS A CONSOLIDATION THERAPY )
     Route: 065
  6. CYTARABINE [Suspect]
     Active Substance: CYTARABINE
     Indication: Ocular lymphoma
     Dosage: UNK
     Route: 065
  7. PROCARBAZINE [Suspect]
     Active Substance: PROCARBAZINE
     Indication: Ocular lymphoma
     Dosage: UNK, EVERY 4 WEEKS FOR FIVE CYCLES (SYSTEMIC; AS A PART OF R-MPV THERAPY)
     Route: 065
  8. VINCRISTINE [Suspect]
     Active Substance: VINCRISTINE
     Indication: Ocular lymphoma
     Dosage: UNK  EVERY 4 WEEKS FOR FIVE CYCLES (SYSTEMIC; AS A PART OF R-MPV THERAPY)
     Route: 065
  9. TIRABRUTINIB [Suspect]
     Active Substance: TIRABRUTINIB
     Indication: Ocular lymphoma
     Dosage: UNK
     Route: 065

REACTIONS (3)
  - Death [Fatal]
  - Pneumonia aspiration [Unknown]
  - Drug ineffective [Unknown]
